FAERS Safety Report 5737088-1 (Version None)
Quarter: 2008Q2

REPORT INFORMATION
  Report Type: 
  Country: None (occurrence: None)
  Receive Date: 20080512
  Receipt Date: 20080512
  Transmission Date: 20081010
  Serious: Yes (Other)
  Sender: FDA-Public Use
  Company Number: None

PATIENT
  Age: 79 Year
  Sex: Male
  Weight: 96.6162 kg

DRUGS (1)
  1. DIGITEK 250MCG TABLET BER  250 MCG  BERTEK PHARM [Suspect]
     Indication: PHARMACEUTICAL PRODUCT COMPLAINT
     Dosage: ONE TAB ONCE DAILY ORAL
     Route: 048
     Dates: start: 20080304, end: 20080409

REACTIONS (5)
  - CHROMATURIA [None]
  - FAECES DISCOLOURED [None]
  - GASTRIC DISORDER [None]
  - OVERDOSE [None]
  - VOMITING [None]
